FAERS Safety Report 7158316-4 (Version None)
Quarter: 2010Q4

REPORT INFORMATION
  Report Type: 
  Country: None (occurrence: None)
  Receive Date: 20101130
  Receipt Date: 20101115
  Transmission Date: 20110411
  Serious: Yes (Congenital Anomaly)
  Sender: FDA-Public Use
  Company Number: GER/UKI/10/0010995

PATIENT
  Sex: Female
  Weight: 3.28 kg

DRUGS (2)
  1. LAMOTRIGINE [Suspect]
     Indication: GRAND MAL CONVULSION
     Dosage: 400 MG, 4 IN 1 D, TRANSPLACENTAL
     Route: 064
  2. TOPAMAX [Suspect]
     Indication: GRAND MAL CONVULSION
     Dosage: 400 MG, 4 IN 1 D, TRANSPLACENTAL
     Route: 064

REACTIONS (2)
  - HIP DYSPLASIA [None]
  - MATERNAL DRUGS AFFECTING FOETUS [None]
